FAERS Safety Report 6085200-X (Version None)
Quarter: 2009Q1

REPORT INFORMATION
  Report Type: 
  Country: None (occurrence: None)
  Receive Date: 20090220
  Receipt Date: 20090213
  Transmission Date: 20090719
  Serious: Yes (Death, Hospitalization)
  Sender: FDA-Public Use
  Company Number: US-BIOGENIDEC-197141

PATIENT
  Age: 40 Year
  Sex: Female

DRUGS (2)
  1. AVONEX [Suspect]
     Indication: MULTIPLE SCLEROSIS
     Route: 030
     Dates: start: 20020315, end: 20031001
  2. AVONEX [Suspect]
     Route: 030
     Dates: start: 20031001

REACTIONS (4)
  - CARCINOID TUMOUR OF THE GASTROINTESTINAL TRACT [None]
  - METASTASES TO LIVER [None]
  - PAIN [None]
  - SMALL INTESTINAL OBSTRUCTION [None]
